FAERS Safety Report 11514373 (Version 1)
Quarter: 2015Q3

REPORT INFORMATION
  Report Type: Spontaneous
  Country: GB (occurrence: GB)
  Receive Date: 20150916
  Receipt Date: 20150916
  Transmission Date: 20151125
  Serious: Yes (Hospitalization, Other)
  Sender: FDA-Public Use
  Company Number: GB-ABBVIE-15P-167-1463823-00

PATIENT
  Age: 43 Year
  Sex: Female
  Weight: 53.6 kg

DRUGS (1)
  1. LUPRON DEPOT [Suspect]
     Active Substance: LEUPROLIDE ACETATE
     Indication: PREMENSTRUAL DYSPHORIC DISORDER
     Dosage: UNK
     Route: 051
     Dates: start: 20150718, end: 20150821

REACTIONS (5)
  - Premenstrual dysphoric disorder [Recovered/Resolved]
  - Fatigue [Recovered/Resolved]
  - Pain in extremity [Recovered/Resolved]
  - Condition aggravated [Recovered/Resolved]
  - Anger [Recovered/Resolved]

NARRATIVE: CASE EVENT DATE: 20150718
